FAERS Safety Report 9833542 (Version 1)
Quarter: 2014Q1

REPORT INFORMATION
  Report Type: Report from Study
  Country: GB (occurrence: GB)
  Receive Date: 20140122
  Receipt Date: 20140122
  Transmission Date: 20141002
  Serious: Yes (Death)
  Sender: FDA-Public Use
  Company Number: GB-ROCHE-1336237

PATIENT
  Sex: Male

DRUGS (1)
  1. TOCILIZUMAB [Suspect]
     Indication: RHEUMATOID ARTHRITIS
     Dosage: DATE OF LAST DOSE PRIOR TO ADVERSE EVENT: 05/JAN/2012
     Route: 065
     Dates: start: 20111206

REACTIONS (3)
  - Sepsis [Fatal]
  - Urinary tract infection [Fatal]
  - Peripheral vascular disorder [Fatal]
